FAERS Safety Report 9251809 (Version 1)
Quarter: 2013Q2

REPORT INFORMATION
  Report Type: Spontaneous
  Country: GB (occurrence: GB)
  Receive Date: 20130424
  Receipt Date: 20130424
  Transmission Date: 20140414
  Serious: Yes (Life-Threatening, Hospitalization, Disabling, Other)
  Sender: FDA-Public Use
  Company Number: PHHY2013GB039557

PATIENT
  Age: 25 Year
  Sex: Female
  Weight: 52.61 kg

DRUGS (7)
  1. QUETIAPINE [Suspect]
     Indication: SCHIZOPHRENIA
     Route: 048
  2. MIRTAZAPINE [Concomitant]
  3. CODEINE [Concomitant]
  4. PROCYCLIDINE [Concomitant]
  5. CLARITHROMYCIN [Concomitant]
  6. PEVARYL [Concomitant]
  7. ECONAZOLE [Concomitant]

REACTIONS (5)
  - Myositis [Recovering/Resolving]
  - Muscle necrosis [Recovering/Resolving]
  - Renal failure acute [Unknown]
  - Pain in extremity [Unknown]
  - Rhabdomyolysis [Unknown]
